FAERS Safety Report 22111979 (Version 3)
Quarter: 2023Q2

REPORT INFORMATION
  Report Type: Spontaneous
  Country: US (occurrence: US)
  Receive Date: 20230318
  Receipt Date: 20230410
  Transmission Date: 20230721
  Serious: Yes (Other)
  Sender: FDA-Public Use
  Company Number: US-MLMSERVICE-20230302-4138718-1

PATIENT
  Age: 6 Year
  Sex: Female
  Weight: 21 kg

DRUGS (13)
  1. CELECOXIB [Suspect]
     Active Substance: CELECOXIB
     Indication: Medulloblastoma recurrent
     Dosage: 250 MILLIGRAM/SQ. METER, ONCE A DAY, EVERY 3 WEEKS
     Route: 065
     Dates: start: 2012, end: 2012
  2. CYCLOPHOSPHAMIDE [Suspect]
     Active Substance: CYCLOPHOSPHAMIDE
     Indication: Medulloblastoma recurrent
     Dosage: 618 MILLIGRAM/SQ. METER, CYCLICAL
     Route: 048
  3. CYCLOPHOSPHAMIDE [Suspect]
     Active Substance: CYCLOPHOSPHAMIDE
     Dosage: 30.9 MILLIGRAM/SQ. METER, ONCE A DAY FROM DAYS 22-42
     Route: 065
  4. CYCLOPHOSPHAMIDE [Suspect]
     Active Substance: CYCLOPHOSPHAMIDE
     Dosage: 1050 MILLIGRAM/SQ. METER, CYCLICAL
     Route: 048
     Dates: start: 2012, end: 2012
  5. VINCRISTINE SULFATE [Suspect]
     Active Substance: VINCRISTINE SULFATE
     Indication: Medulloblastoma
     Dosage: UNK
     Route: 065
  6. BEVACIZUMAB [Suspect]
     Active Substance: BEVACIZUMAB
     Indication: Medulloblastoma recurrent
     Dosage: 5 MILLIGRAM/KILOGRAM,EVERY 3 WEEKS
     Route: 065
  7. CISPLATIN [Suspect]
     Active Substance: CISPLATIN
     Indication: Medulloblastoma
     Dosage: UNK
     Route: 065
  8. ETOPOSIDE [Suspect]
     Active Substance: ETOPOSIDE
     Indication: Medulloblastoma recurrent
     Dosage: 516.6 MILLIGRAM/SQ. METER (DAYS 1-21)
     Route: 048
     Dates: start: 2012, end: 2012
  9. ETOPOSIDE [Suspect]
     Active Substance: ETOPOSIDE
     Dosage: 24.6 MILLIGRAM/SQ. METER
     Route: 048
  10. ISOTRETINOIN [Suspect]
     Active Substance: ISOTRETINOIN
     Indication: Medulloblastoma recurrent
     Dosage: UNK
     Route: 065
     Dates: start: 2011, end: 2011
  11. LOMUSTINE [Suspect]
     Active Substance: LOMUSTINE
     Indication: Medulloblastoma
     Dosage: UNK (MAINTENANCE)
     Route: 065
  12. TEMOZOLOMIDE [Suspect]
     Active Substance: TEMOZOLOMIDE
     Indication: Medulloblastoma
     Dosage: 1260 MG/M2, CYCLICAL
     Route: 065
  13. VALPROIC ACID [Suspect]
     Active Substance: VALPROIC ACID
     Indication: Medulloblastoma recurrent
     Dosage: 15 MILLIGRAM/KILOGRAM, ONCE A DAY (EVERY 3 WEEKS)
     Route: 065
     Dates: start: 2012, end: 2012

REACTIONS (2)
  - Pancytopenia [Recovered/Resolved]
  - Haematotoxicity [Unknown]

NARRATIVE: CASE EVENT DATE: 20120101
